FAERS Safety Report 6512272-8 (Version None)
Quarter: 2009Q4

REPORT INFORMATION
  Report Type: 
  Country: None (occurrence: None)
  Receive Date: 20091222
  Receipt Date: 20090709
  Transmission Date: 20100525
  Serious: No
  Sender: FDA-Public Use
  Company Number: US-ASTRAZENECA-2009UW19369

PATIENT
  Age: 72 Year
  Sex: Female
  Weight: 79.4 kg

DRUGS (2)
  1. CRESTOR [Suspect]
     Indication: BLOOD CHOLESTEROL INCREASED
     Route: 048
     Dates: start: 20081111, end: 20081111
  2. SYNTHROID [Concomitant]

REACTIONS (2)
  - BONE PAIN [None]
  - PAIN IN EXTREMITY [None]
